FAERS Safety Report 12489966 (Version 2)
Quarter: 2016Q2

REPORT INFORMATION
  Report Type: Spontaneous
  Country: NO (occurrence: NO)
  Receive Date: 20160622
  Receipt Date: 20160630
  Transmission Date: 20160815
  Serious: Yes (Life-Threatening, Hospitalization)
  Sender: FDA-Public Use
  Company Number: NO-FERRINGPH-2016FE02667

PATIENT

DRUGS (1)
  1. FIRMAGON [Suspect]
     Active Substance: DEGARELIX ACETATE
     Indication: BENIGN PROSTATIC HYPERPLASIA
     Dosage: 120 MG (25042016) 120 MG 27042016 80 MG 19052016
     Route: 058
     Dates: start: 20160425, end: 20160519

REACTIONS (4)
  - Myocardial infarction [Recovering/Resolving]
  - Urosepsis [Recovering/Resolving]
  - Liver function test increased [Recovering/Resolving]
  - Product use issue [Recovering/Resolving]

NARRATIVE: CASE EVENT DATE: 20160425
